FAERS Safety Report 6386598-5 (Version None)
Quarter: 2009Q4

REPORT INFORMATION
  Report Type: 
  Country: None (occurrence: None)
  Receive Date: 20091002
  Receipt Date: 20090417
  Transmission Date: 20100525
  Serious: No
  Sender: FDA-Public Use
  Company Number: US-ASTRAZENECA-2009UW09599

PATIENT
  Age: 23246 Day
  Sex: Female
  Weight: 72.6 kg

DRUGS (6)
  1. ARIMIDEX [Suspect]
     Indication: BREAST CANCER
     Route: 048
     Dates: start: 20081201
  2. PRAVASTATIN [Concomitant]
  3. HYDROCHLOROTHIAZIDE [Concomitant]
  4. NEXIUM [Concomitant]
     Route: 048
  5. MULTI-VITAMIN [Concomitant]
  6. CALTRATE WITH VITAMIN D [Concomitant]

REACTIONS (5)
  - ABDOMINAL PAIN [None]
  - NAUSEA [None]
  - PRURITUS [None]
  - SKIN BURNING SENSATION [None]
  - VULVOVAGINAL DRYNESS [None]
